FAERS Safety Report 24354815 (Version 1)
Quarter: 2024Q3

REPORT INFORMATION
  Report Type: Spontaneous
  Country: CA (occurrence: CA)
  Receive Date: 20240923
  Receipt Date: 20240923
  Transmission Date: 20241017
  Serious: Yes (Other)
  Sender: APELLIS PHARMACEUTICALS
  Company Number: CA-BIOVITRUM-2024-CA-011193

PATIENT

DRUGS (4)
  1. EMPAVELI [Suspect]
     Active Substance: PEGCETACOPLAN
     Indication: Paroxysmal nocturnal haemoglobinuria
     Dosage: BIW
     Route: 042
     Dates: start: 201906
  2. EMPAVELI [Suspect]
     Active Substance: PEGCETACOPLAN
     Dosage: EVERY 3 DAYS/EVERY THIRD DAY
     Route: 042
     Dates: start: 202310
  3. PENICILLIN V [Concomitant]
     Active Substance: PENICILLIN V
     Indication: Product used for unknown indication
     Dosage: TWICE DAILY
  4. FOLIC ACID [Concomitant]
     Active Substance: FOLIC ACID
     Indication: Product used for unknown indication
     Dosage: QD (ONCE A DAY)
     Route: 048

REACTIONS (1)
  - Breakthrough haemolysis [Recovered/Resolved]

NARRATIVE: CASE EVENT DATE: 20231001
